FAERS Safety Report 11089041 (Version 4)
Quarter: 2015Q2

REPORT INFORMATION
  Report Type: Report from Study
  Country: DE (occurrence: DE)
  Receive Date: 20150504
  Receipt Date: 20150515
  Transmission Date: 20150821
  Serious: Yes (Hospitalization)
  Sender: FDA-Public Use
  Company Number: DE-AMGEN-DEUCT2015042537

PATIENT
  Age: 17 Year
  Sex: Female
  Weight: 63 kg

DRUGS (6)
  1. ETANERCEPT [Suspect]
     Active Substance: ETANERCEPT
     Indication: JUVENILE IDIOPATHIC ARTHRITIS
     Dosage: 25 MG, WEEKLY
     Route: 065
     Dates: start: 20100115
  2. PANTOPRAZOLE SODIUM. [Concomitant]
     Active Substance: PANTOPRAZOLE SODIUM
     Indication: PROPHYLAXIS
     Dosage: UNK
     Route: 048
     Dates: start: 20100115
  3. ETORICOXIB [Concomitant]
     Active Substance: ETORICOXIB
     Indication: JUVENILE IDIOPATHIC ARTHRITIS
     Dosage: UNK
  4. PREDNISOLONE. [Concomitant]
     Active Substance: PREDNISOLONE
     Indication: JUVENILE IDIOPATHIC ARTHRITIS
     Dosage: UNK
     Route: 048
     Dates: start: 20100115
  5. LEFLUNOMIDE. [Concomitant]
     Active Substance: LEFLUNOMIDE
     Indication: JUVENILE IDIOPATHIC ARTHRITIS
     Dosage: 20 MG, DAILY
     Route: 048
     Dates: start: 20091101
  6. ARCOXIA [Concomitant]
     Active Substance: ETORICOXIB
     Indication: JUVENILE IDIOPATHIC ARTHRITIS
     Dosage: 30 MG, DAILY
     Route: 048
     Dates: start: 20100101

REACTIONS (3)
  - Impaired healing [Recovered/Resolved]
  - Osteitis [Recovered/Resolved]
  - Alveolitis [Recovered/Resolved]

NARRATIVE: CASE EVENT DATE: 20100406
